FAERS Safety Report 15753554 (Version 1)
Quarter: 2018Q4

REPORT INFORMATION
  Report Type: Report from Study
  Country: None (occurrence: DE)
  Receive Date: 20181222
  Receipt Date: 20181222
  Transmission Date: 20190205
  Serious: Yes (Hospitalization)
  Sender: FDA-Public Use
  Company Number: DE-ABBVIE-18K-062-2601012-00

PATIENT
  Age: 53 Year
  Sex: Male

DRUGS (1)
  1. HUMIRA [Suspect]
     Active Substance: ADALIMUMAB
     Indication: COLITIS ULCERATIVE
     Route: 058
     Dates: start: 20161117

REACTIONS (7)
  - Intestinal anastomosis [Unknown]
  - Inflammatory marker increased [Recovered/Resolved]
  - Intestinal resection [Not Recovered/Not Resolved]
  - Pyrexia [Recovering/Resolving]
  - Pulmonary embolism [Not Recovered/Not Resolved]
  - Back pain [Recovering/Resolving]
  - Rhinitis [Not Recovered/Not Resolved]

NARRATIVE: CASE EVENT DATE: 20181128
